FAERS Safety Report 10753924 (Version 1)
Quarter: 2015Q1

REPORT INFORMATION
  Report Type: Spontaneous
  Country: US (occurrence: US)
  Receive Date: 20150202
  Receipt Date: 20150202
  Transmission Date: 20150721
  Serious: No
  Sender: FDA-Public Use
  Company Number: US-BRISTOL-MYERS SQUIBB COMPANY-BMS-2015-002010

PATIENT
  Sex: Male
  Weight: 72 kg

DRUGS (1)
  1. ERBITUX [Suspect]
     Active Substance: CETUXIMAB
     Indication: LIP AND/OR ORAL CAVITY CANCER
     Route: 065

REACTIONS (4)
  - Weight decreased [Unknown]
  - Oropharyngeal pain [Unknown]
  - Eating disorder [Unknown]
  - Fatigue [Unknown]
